FAERS Safety Report 5017876-X (Version None)
Quarter: 2006Q2

REPORT INFORMATION
  Report Type: 
  Country: None (occurrence: None)
  Receive Date: 20060605
  Receipt Date: 20060524
  Transmission Date: 20061013
  Serious: Yes (Hospitalization)
  Sender: FDA-Public Use
  Company Number: DE-BRISTOL-MYERS SQUIBB COMPANY-13392899

PATIENT
  Age: 60 Year
  Sex: Male

DRUGS (3)
  1. ERBITUX [Suspect]
     Indication: NON-SMALL CELL LUNG CANCER
     Dosage: DOSE DELAYED/RESTARTED ON 16-MAY-2006.
     Route: 041
     Dates: start: 20060111
  2. CISPLATIN [Suspect]
     Indication: NON-SMALL CELL LUNG CANCER
     Dosage: DOSE DELAYED/RESTARTED ON 16-MAY-2006.
     Route: 042
     Dates: start: 20060111
  3. VINORELBINE [Suspect]
     Indication: NON-SMALL CELL LUNG CANCER
     Dosage: DOSE DELAYED/RESTARTED ON 16-MAY-2006.
     Route: 042
     Dates: start: 20060111

REACTIONS (1)
  - PANCYTOPENIA [None]
